FAERS Safety Report 17768959 (Version 1)
Quarter: 2020Q2

REPORT INFORMATION
  Report Type: Spontaneous
  Country: US (occurrence: US)
  Receive Date: 20200512
  Receipt Date: 20200512
  Transmission Date: 20200714
  Serious: No
  Sender: FDA-Public Use
  Company Number: US-BIOVITRUM-2019US3026

PATIENT
  Age: 5 Year
  Sex: Male

DRUGS (2)
  1. KINERET [Suspect]
     Active Substance: ANAKINRA
     Indication: PYREXIA
  2. KINERET [Suspect]
     Active Substance: ANAKINRA
     Indication: TUMOUR NECROSIS FACTOR RECEPTOR-ASSOCIATED PERIODIC SYNDROME
     Dates: start: 20190701

REACTIONS (3)
  - Off label use [Unknown]
  - Contusion [Unknown]
  - Urticaria [Unknown]

NARRATIVE: CASE EVENT DATE: 20190701
